FAERS Safety Report 10089404 (Version 1)
Quarter: 2014Q2

REPORT INFORMATION
  Report Type: Spontaneous
  Country: US (occurrence: None)
  Receive Date: 20140418
  Receipt Date: 20140418
  Transmission Date: 20141212
  Serious: Yes (Hospitalization)
  Sender: FDA-Public Use
  Company Number: None

PATIENT
  Age: 71 Year
  Sex: Female

DRUGS (13)
  1. AFINITOR [Suspect]
     Indication: BREAST CANCER FEMALE
     Dosage: 10MG DAILY ORAL
     Route: 048
     Dates: start: 20140217
  2. AFINITOR [Suspect]
     Indication: METASTASES TO BONE
     Dosage: 10MG DAILY ORAL
     Route: 048
     Dates: start: 20140217
  3. ZOFRAN [Concomitant]
  4. PRILOSEC [Concomitant]
  5. ATIVAN [Concomitant]
  6. NORTRIPTYLINE [Concomitant]
  7. HCTZ [Concomitant]
  8. LISINOPRIL [Concomitant]
  9. ATENOLOL [Concomitant]
  10. VITAMIN C [Concomitant]
  11. D3 [Concomitant]
  12. OMEPRAZOLE [Concomitant]
  13. SIMVASTATIN [Concomitant]

REACTIONS (2)
  - Blood count abnormal [None]
  - Apparent death [None]
